FAERS Safety Report 5936783-9 (Version None)
Quarter: 2008Q4

REPORT INFORMATION
  Report Type: 
  Country: None (occurrence: None)
  Receive Date: 20081029
  Receipt Date: 20081014
  Transmission Date: 20090506
  Serious: Yes (Other)
  Sender: FDA-Public Use
  Company Number: 2008S1012531

PATIENT
  Age: 44 Year
  Sex: Female
  Weight: 68.0396 kg

DRUGS (8)
  1. FENTANYL TRANSDERMAL SYSTEM [Suspect]
     Indication: ATONIC URINARY BLADDER
     Dosage: 50 UG; EVERY HOUR; TRANSDERMAL
     Route: 062
  2. FENTANYL TRANSDERMAL SYSTEM [Suspect]
     Indication: BACK INJURY
     Dosage: 50 UG; EVERY HOUR; TRANSDERMAL
     Route: 062
  3. FENTANYL TRANSDERMAL SYSTEM [Suspect]
     Indication: ATONIC URINARY BLADDER
     Dosage: 75 UG; EVERY HOUR; TRANSDERMAL
     Route: 062
     Dates: start: 20071201, end: 20080528
  4. FENTANYL TRANSDERMAL SYSTEM [Suspect]
     Indication: BACK INJURY
     Dosage: 75 UG; EVERY HOUR; TRANSDERMAL
     Route: 062
     Dates: start: 20071201, end: 20080528
  5. GABAPENIN [Concomitant]
  6. PROZAC [Concomitant]
  7. PROMETHAZINE [Concomitant]
  8. VALIUM [Concomitant]

REACTIONS (33)
  - AMNESIA [None]
  - ANALGESIA [None]
  - ANXIETY [None]
  - BACK PAIN [None]
  - BLADDER OPERATION [None]
  - CONFUSIONAL STATE [None]
  - CONTUSION [None]
  - DECREASED ACTIVITY [None]
  - DROOLING [None]
  - DRUG EFFECT DECREASED [None]
  - DYSGRAPHIA [None]
  - DYSPHEMIA [None]
  - DYSSTASIA [None]
  - FALL [None]
  - FATIGUE [None]
  - FIBROMYALGIA [None]
  - GASTRIC DISORDER [None]
  - HEADACHE [None]
  - HYPOPHAGIA [None]
  - INSOMNIA [None]
  - LOSS OF CONTROL OF LEGS [None]
  - LOSS OF EMPLOYMENT [None]
  - MALAISE [None]
  - MUSCLE SPASMS [None]
  - NAUSEA [None]
  - NERVOUS SYSTEM DISORDER [None]
  - NEURALGIA [None]
  - PAIN [None]
  - PRODUCT QUALITY ISSUE [None]
  - ROAD TRAFFIC ACCIDENT [None]
  - VOMITING [None]
  - WEIGHT DECREASED [None]
  - WITHDRAWAL SYNDROME [None]
